FAERS Safety Report 11147257 (Version 3)
Quarter: 2015Q3

REPORT INFORMATION
  Report Type: Report from Study
  Country: DE (occurrence: DE)
  Receive Date: 20150528
  Receipt Date: 20150723
  Transmission Date: 20151125
  Serious: Yes (Hospitalization, Disabling, Other)
  Sender: FDA-Public Use
  Company Number: DE-ABBVIE-15P-062-1397834-00

PATIENT
  Age: 73 Year
  Sex: Female

DRUGS (5)
  1. PRAVASTATIN [Concomitant]
     Active Substance: PRAVASTATIN\PRAVASTATIN SODIUM
     Indication: PRODUCT USED FOR UNKNOWN INDICATION
  2. METOHEXAL [Concomitant]
     Active Substance: METOPROLOL SUCCINATE
     Indication: HYPERTENSION
     Route: 048
     Dates: start: 2013
  3. DUODOPA [Suspect]
     Active Substance: CARBIDOPA\LEVODOPA
     Indication: PARKINSON^S DISEASE
     Dosage: MD 7.5ML, CRD 4.1ML/H, ED 1ML
     Route: 050
     Dates: start: 20130821
  4. PRAMIPEXOL [Concomitant]
     Active Substance: PRAMIPEXOLE
     Indication: PRODUCT USED FOR UNKNOWN INDICATION
     Route: 048
     Dates: start: 2001
  5. NACOM [Concomitant]
     Active Substance: CARBIDOPA\LEVODOPA
     Indication: PRODUCT USED FOR UNKNOWN INDICATION
     Dosage: 200/50
     Route: 048
     Dates: start: 2001

REACTIONS (13)
  - Aphasia [Unknown]
  - Cerebrovascular accident [Recovering/Resolving]
  - Hypertrophic cardiomyopathy [Not Recovered/Not Resolved]
  - Diastolic dysfunction [Unknown]
  - Hypokalaemia [Unknown]
  - Macroangiopathy [Unknown]
  - Disorientation [Unknown]
  - Fall [Recovered/Resolved]
  - Epilepsy [Unknown]
  - Aortic arteriosclerosis [Unknown]
  - Gait disturbance [Not Recovered/Not Resolved]
  - Vascular stenosis [Unknown]
  - Apraxia [Unknown]

NARRATIVE: CASE EVENT DATE: 201505
